FAERS Safety Report 6175537-8 (Version None)
Quarter: 2009Q2

REPORT INFORMATION
  Report Type: 
  Country: None (occurrence: None)
  Receive Date: 20090429
  Receipt Date: 20090414
  Transmission Date: 20091009
  Serious: Yes (Life-Threatening)
  Sender: FDA-Public Use
  Company Number: JPI-P-006987

PATIENT
  Age: 17 Year
  Sex: Male

DRUGS (2)
  1. LUVOX [Suspect]
     Indication: DRUG USE FOR UNKNOWN INDICATION
     Dosage: (6000 MG, ONCE), ORAL
     Route: 048
     Dates: start: 20090408, end: 20090408
  2. TANDOSPIRONE CITRATE [Suspect]
     Indication: DRUG USE FOR UNKNOWN INDICATION
     Dosage: (1420 MG, ONCE), ORAL
     Route: 048
     Dates: start: 20090408, end: 20090408

REACTIONS (5)
  - CARDIO-RESPIRATORY ARREST [None]
  - HAEMORRHAGIC DIATHESIS [None]
  - MULTIPLE DRUG OVERDOSE [None]
  - MUSCULOSKELETAL STIFFNESS [None]
  - PYREXIA [None]
